FAERS Safety Report 9936859 (Version 1)
Quarter: 2014Q1

REPORT INFORMATION
  Report Type: Spontaneous
  Country: US (occurrence: None)
  Receive Date: 20140115
  Receipt Date: 20140115
  Transmission Date: 20141002
  Serious: Yes (Other)
  Sender: FDA-Public Use
  Company Number: 2013US002689

PATIENT
  Age: 62 Year
  Sex: Female
  Weight: 128 kg

DRUGS (3)
  1. ICLUSIG (PONATINIB) TABLET, 45MG [Suspect]
     Indication: CHRONIC MYELOID LEUKAEMIA
     Route: 048
     Dates: start: 20130926, end: 20131017
  2. LISINOPRIL (LISINOPRIL) [Concomitant]
  3. IRON [Concomitant]

REACTIONS (3)
  - Lipase increased [None]
  - Pancreatic disorder [None]
  - Pyrexia [None]
